FAERS Safety Report 4589623-7 (Version None)
Quarter: 2005Q1

REPORT INFORMATION
  Report Type: 
  Country: None (occurrence: None)
  Receive Date: 20050223
  Receipt Date: 20050208
  Transmission Date: 20050727
  Serious: Yes (Other)
  Sender: FDA-Public Use
  Company Number: PHBS2005AR01988

PATIENT
  Age: 77 Year
  Sex: Male

DRUGS (4)
  1. PYGEUM AFRICANUM [Concomitant]
  2. SERENOA REPENS EXTRACT [Concomitant]
  3. BILETAN [Concomitant]
  4. LAMISIL [Suspect]
     Indication: NAIL TINEA
     Dosage: 250 MG, QD
     Route: 048
     Dates: start: 20050101

REACTIONS (4)
  - HEARING IMPAIRED [None]
  - NAUSEA [None]
  - VERTIGO [None]
  - VOMITING [None]
